FAERS Safety Report 5321304-4 (Version None)
Quarter: 2007Q2

REPORT INFORMATION
  Report Type: 
  Country: None (occurrence: None)
  Receive Date: 20070507
  Receipt Date: 20070507
  Transmission Date: 20071010
  Serious: Yes (Life-Threatening)
  Sender: FDA-Public Use
  Company Number: None

PATIENT
  Age: 77 Year
  Sex: Female

DRUGS (2)
  1. HURRICAINE SPRAY [Suspect]
     Indication: INTUBATION
  2. HURRICAINE SPRAY [Suspect]
     Indication: LOCAL ANAESTHESIA

REACTIONS (1)
  - METHAEMOGLOBINAEMIA [None]
